FAERS Safety Report 6325879-8 (Version None)
Quarter: 2009Q3

REPORT INFORMATION
  Report Type: 
  Country: None (occurrence: None)
  Receive Date: 20090824
  Receipt Date: 20090811
  Transmission Date: 20100115
  Serious: Yes (Congenital Anomaly)
  Sender: FDA-Public Use
  Company Number: NL-MERCK-0908NLD00002

PATIENT
  Sex: Male

DRUGS (1)
  1. PROPECIA [Suspect]
     Route: 064

REACTIONS (1)
  - GENITAL DISORDER MALE [None]
